FAERS Safety Report 10746697 (Version 1)
Quarter: 2015Q1

REPORT INFORMATION
  Report Type: Spontaneous
  Country: US (occurrence: US)
  Receive Date: 20150128
  Receipt Date: 20150128
  Transmission Date: 20150721
  Serious: No
  Sender: FDA-Public Use
  Company Number: US-009507513-1501USA009653

PATIENT

DRUGS (2)
  1. GANIRELIX ACETATE INJECTION [Suspect]
     Active Substance: GANIRELIX ACETATE
     Dosage: 250 MICROGRAM, ONCE DAILY
     Route: 058
     Dates: start: 20141229
  2. FOLLISTIM [Concomitant]
     Active Substance: FOLLITROPIN

REACTIONS (3)
  - No adverse event [Unknown]
  - Needle issue [Unknown]
  - Underdose [Unknown]
